FAERS Safety Report 9302413 (Version 1)
Quarter: 2013Q2

REPORT INFORMATION
  Report Type: Spontaneous
  Country: US (occurrence: US)
  Receive Date: 20130522
  Receipt Date: 20130522
  Transmission Date: 20140414
  Serious: No
  Sender: FDA-Public Use
  Company Number: US-BIOGENIDEC-2013BI045120

PATIENT
  Sex: Male

DRUGS (4)
  1. TYSABRI [Suspect]
     Indication: MULTIPLE SCLEROSIS
     Route: 042
     Dates: start: 20060921, end: 20110504
  2. TYSABRI [Suspect]
     Indication: MULTIPLE SCLEROSIS
     Route: 042
     Dates: start: 20110404, end: 20130201
  3. TYSABRI [Suspect]
     Indication: MULTIPLE SCLEROSIS
     Route: 042
     Dates: start: 20120207
  4. AVONEX [Concomitant]
     Indication: MULTIPLE SCLEROSIS
     Route: 030

REACTIONS (1)
  - Device related infection [Recovered/Resolved]
